FAERS Safety Report 5291353-3 (Version None)
Quarter: 2007Q2

REPORT INFORMATION
  Report Type: 
  Country: None (occurrence: None)
  Receive Date: 20070409
  Receipt Date: 20070330
  Transmission Date: 20071010
  Serious: Yes (Hospitalization)
  Sender: FDA-Public Use
  Company Number: NL-MERCK-0704NLD00003

PATIENT
  Age: 5 Year
  Sex: Female

DRUGS (3)
  1. SINGULAIR [Suspect]
     Indication: ASTHMA
     Route: 048
     Dates: start: 20070101, end: 20070203
  2. FLUTICASONE PROPIONATE [Concomitant]
     Indication: ASTHMA
     Route: 065
     Dates: start: 20061205
  3. ALBUTEROL [Concomitant]
     Indication: ASTHMA
     Dates: start: 20061205

REACTIONS (4)
  - CONFUSIONAL STATE [None]
  - HEADACHE [None]
  - MOVEMENT DISORDER [None]
  - PRESCRIBED OVERDOSE [None]
